FAERS Safety Report 11053588 (Version 2)
Quarter: 2015Q2

REPORT INFORMATION
  Report Type: Spontaneous
  Country: US (occurrence: US)
  Receive Date: 20150421
  Receipt Date: 20150525
  Transmission Date: 20150821
  Serious: Yes (Hospitalization)
  Sender: FDA-Public Use
  Company Number: US-JNJFOC-20140100109

PATIENT
  Age: 55 Year
  Sex: Female
  Weight: 90.72 kg

DRUGS (4)
  1. RISPERDAL CONSTA [Suspect]
     Active Substance: RISPERIDONE
     Indication: BIPOLAR DISORDER
     Route: 030
     Dates: start: 201308, end: 201309
  2. RISPERDAL CONSTA [Suspect]
     Active Substance: RISPERIDONE
     Indication: BIPOLAR DISORDER
     Route: 030
     Dates: start: 201309, end: 201309
  3. TRILEPTAL [Concomitant]
     Active Substance: OXCARBAZEPINE
     Indication: BIPOLAR DISORDER
     Route: 048
     Dates: start: 201312
  4. RISPERDAL CONSTA [Suspect]
     Active Substance: RISPERIDONE
     Indication: BIPOLAR DISORDER
     Route: 030
     Dates: start: 201312

REACTIONS (5)
  - Adverse event [Recovering/Resolving]
  - Malaise [Recovering/Resolving]
  - Anxiety [Recovering/Resolving]
  - Drug ineffective [Not Recovered/Not Resolved]
  - Restlessness [Recovering/Resolving]

NARRATIVE: CASE EVENT DATE: 2013
